FAERS Safety Report 8529978-1 (Version None)
Quarter: 2012Q3

REPORT INFORMATION
  Report Type: 
  Country: None (occurrence: None)
  Receive Date: 20120723
  Receipt Date: 20120716
  Transmission Date: 20120928
  Serious: Yes (Other)
  Sender: FDA-Public Use
  Company Number: PHHY2012ZA062148

PATIENT
  Age: 69 Year
  Sex: Female

DRUGS (1)
  1. ZOLEDRONOC ACID [Suspect]
     Dosage: 5 MG, YEARLY
     Route: 042
     Dates: start: 20120710

REACTIONS (11)
  - TRISMUS [None]
  - DYSPNOEA [None]
  - BACK PAIN [None]
  - ARTHRITIS [None]
  - CHEST PAIN [None]
  - JOINT STIFFNESS [None]
  - INSOMNIA [None]
  - PAIN [None]
  - MUSCULOSKELETAL CHEST PAIN [None]
  - PAIN IN JAW [None]
  - COUGH [None]
